FAERS Safety Report 7665466-2 (Version None)
Quarter: 2011Q3

REPORT INFORMATION
  Report Type: 
  Country: None (occurrence: None)
  Receive Date: 20110806
  Receipt Date: 20110321
  Transmission Date: 20111222
  Serious: No
  Sender: FDA-Public Use
  Company Number: US-ABBOTT-11P-163-0713465-00

PATIENT
  Sex: Male
  Weight: 83.99 kg

DRUGS (3)
  1. CLONIDINE [Concomitant]
     Indication: BLOOD PRESSURE
  2. CRESTOR [Concomitant]
     Indication: BLOOD CHOLESTEROL
  3. NIASPAN [Suspect]
     Indication: BLOOD CHOLESTEROL
     Dates: start: 20090901

REACTIONS (1)
  - PARAESTHESIA [None]
